FAERS Safety Report 13377214 (Version 1)
Quarter: 2017Q1

REPORT INFORMATION
  Report Type: Spontaneous
  Country: US (occurrence: US)
  Receive Date: 20170328
  Receipt Date: 20170328
  Transmission Date: 20170429
  Serious: No
  Sender: FDA-Public Use
  Company Number: None

PATIENT
  Age: 68 Year
  Sex: Male
  Weight: 95.34 kg

DRUGS (3)
  1. GADAVIST [Suspect]
     Active Substance: GADOBUTROL
     Indication: LUNG NEOPLASM MALIGNANT
  2. GADOLINIUM [Suspect]
     Active Substance: GADOLINIUM
  3. GADAVIST [Suspect]
     Active Substance: GADOBUTROL
     Indication: PROSTATE CANCER

REACTIONS (1)
  - Vomiting [None]

NARRATIVE: CASE EVENT DATE: 20170324
